FAERS Safety Report 4335765-0 (Version None)
Quarter: 2004Q2

REPORT INFORMATION
  Report Type: 
  Country: None (occurrence: None)
  Receive Date: 20040409
  Receipt Date: 20040401
  Transmission Date: 20050107
  Serious: Yes (Hospitalization)
  Sender: FDA-Public Use
  Company Number: AU-BRISTOL-MYERS SQUIBB COMPANY-12549499

PATIENT
  Age: 81 Year
  Sex: Male

DRUGS (4)
  1. METFORMIN HCL [Suspect]
     Route: 048
  2. DIABEX [Suspect]
     Indication: DIABETES MELLITUS
     Dosage: DURATION OF THERAPY:  ^LONGTERM^
     Route: 048
  3. AMARYL [Concomitant]
  4. DIAMICRON [Concomitant]

REACTIONS (1)
  - PHOTOSENSITIVE RASH [None]
